FAERS Safety Report 6030830-4 (Version None)
Quarter: 2009Q1

REPORT INFORMATION
  Report Type: 
  Country: None (occurrence: None)
  Receive Date: 20090106
  Receipt Date: 20081226
  Transmission Date: 20090719
  Serious: Yes (Death, Other)
  Sender: FDA-Public Use
  Company Number: 2008-04522

PATIENT
  Age: 51 Year
  Sex: Female

DRUGS (3)
  1. VELCADE [Suspect]
     Indication: MULTIPLE MYELOMA
     Dosage: 1.3 MG/M2, INTRAVENOUS
     Route: 042
     Dates: start: 20081126, end: 20081129
  2. MELPHALAN [Concomitant]
  3. PREDNISOLONE [Concomitant]

REACTIONS (14)
  - ABDOMINAL PAIN UPPER [None]
  - BLOOD PRESSURE DECREASED [None]
  - BLOOD PRESSURE INCREASED [None]
  - BODY TEMPERATURE INCREASED [None]
  - CEREBRAL CIRCULATORY FAILURE [None]
  - COMA [None]
  - DRUG RESISTANCE [None]
  - ENCEPHALOPATHY [None]
  - GENERAL PHYSICAL HEALTH DETERIORATION [None]
  - HAEMORRHAGE [None]
  - HAEMORRHAGIC STROKE [None]
  - NAUSEA [None]
  - PLATELET COUNT DECREASED [None]
  - VOMITING [None]
